FAERS Safety Report 12239219 (Version 1)
Quarter: 2016Q2

REPORT INFORMATION
  Report Type: Spontaneous
  Country: US (occurrence: US)
  Receive Date: 20160405
  Receipt Date: 20160405
  Transmission Date: 20160815
  Serious: No
  Sender: FDA-Public Use
  Company Number: ADR-2014-00331

PATIENT
  Age: 62 Year
  Sex: Male

DRUGS (1)
  1. BACLOFEN. [Suspect]
     Active Substance: BACLOFEN
     Dosage: 375 MG
     Route: 037

REACTIONS (2)
  - Sleep disorder [Unknown]
  - Peripheral coldness [Unknown]
